FAERS Safety Report 24356989 (Version 1)
Quarter: 2024Q3

REPORT INFORMATION
  Report Type: Spontaneous
  Country: DK (occurrence: DK)
  Receive Date: 20240924
  Receipt Date: 20240924
  Transmission Date: 20241016
  Serious: Yes (Hospitalization)
  Sender: MACLEODS
  Company Number: DK-MLMSERVICE-20240910-PI189713-00246-1

PATIENT

DRUGS (3)
  1. OLANZAPINE [Suspect]
     Active Substance: OLANZAPINE
     Indication: Bipolar I disorder
     Route: 065
  2. LITHIUM [Concomitant]
     Active Substance: LITHIUM
     Indication: Bipolar I disorder
     Route: 065
  3. VALPROATE [Concomitant]
     Active Substance: VALPROIC ACID
     Indication: Bipolar I disorder
     Route: 065

REACTIONS (5)
  - Cognitive disorder [Unknown]
  - Salivary hypersecretion [Unknown]
  - Dysarthria [Unknown]
  - Sedation [Unknown]
  - Akathisia [Unknown]
